FAERS Safety Report 16455858 (Version 1)
Quarter: 2019Q2

REPORT INFORMATION
  Report Type: Spontaneous
  Country: SE (occurrence: SE)
  Receive Date: 20190620
  Receipt Date: 20190620
  Transmission Date: 20190711
  Serious: Yes (Other)
  Sender: FDA-Public Use
  Company Number: SE-AUROBINDO-AUR-APL-2019-034488

PATIENT

DRUGS (2)
  1. METOPROLOL FILM-COATED TABLET [Suspect]
     Active Substance: METOPROLOL
     Indication: HYPERTENSION
     Dosage: 1 DOSAGE FORM, DAILY (1 TABLET DAILY)
     Route: 065
     Dates: start: 20161128, end: 20170119
  2. LEVAXIN [Concomitant]
     Active Substance: LEVOTHYROXINE SODIUM
     Indication: PRODUCT USED FOR UNKNOWN INDICATION
     Dosage: UNK
     Route: 065
     Dates: start: 19900101

REACTIONS (2)
  - Vasculitis [Recovered/Resolved with Sequelae]
  - Vascular injury [Recovered/Resolved with Sequelae]

NARRATIVE: CASE EVENT DATE: 20161214
